FAERS Safety Report 4366955-9 (Version None)
Quarter: 2004Q2

REPORT INFORMATION
  Report Type: 
  Country: None (occurrence: None)
  Receive Date: 20040524
  Receipt Date: 20040510
  Transmission Date: 20050107
  Serious: Yes (Disabling)
  Sender: FDA-Public Use
  Company Number: 2004010683

PATIENT
  Sex: Female

DRUGS (1)
  1. NARDIL [Suspect]
     Indication: ILL-DEFINED DISORDER

REACTIONS (9)
  - DIARRHOEA [None]
  - DYSARTHRIA [None]
  - FAECAL INCONTINENCE [None]
  - FEELING ABNORMAL [None]
  - FLATULENCE [None]
  - GAIT DISTURBANCE [None]
  - PHARMACEUTICAL PRODUCT COMPLAINT [None]
  - SOMNOLENCE [None]
  - TREMOR [None]
